FAERS Safety Report 9004690 (Version 2)
Quarter: 2013Q1

REPORT INFORMATION
  Report Type: Spontaneous
  Country: SA (occurrence: SA)
  Receive Date: 20130109
  Receipt Date: 20130221
  Transmission Date: 20140127
  Serious: No
  Sender: FDA-Public Use
  Company Number: SA-ELI_LILLY_AND_COMPANY-SA201301000710

PATIENT
  Sex: Female

DRUGS (1)
  1. TERIPARATIDE [Suspect]

REACTIONS (2)
  - Pain in extremity [Unknown]
  - Intentional drug misuse [Unknown]
